FAERS Safety Report 12517619 (Version 1)
Quarter: 2016Q2

REPORT INFORMATION
  Report Type: Report from Study
  Country: CN (occurrence: CN)
  Receive Date: 20160630
  Receipt Date: 20160630
  Transmission Date: 20160815
  Serious: Yes (Hospitalization, Other)
  Sender: FDA-Public Use
  Company Number: PHHY2016CN088435

PATIENT
  Age: 77 Year
  Sex: Female
  Weight: 50 kg

DRUGS (2)
  1. BETAHISTINE MESILATE [Concomitant]
     Active Substance: BETAHISTINE MESILATE
     Indication: DIZZINESS
     Dosage: 6 MG, TID
     Route: 065
     Dates: start: 20141105
  2. EXFORGE [Suspect]
     Active Substance: AMLODIPINE BESYLATE\VALSARTAN
     Indication: HYPERTENSION
     Dosage: 1 DF (VALSARTAN 80 MG, AMLODIPINE 5 MG), QD
     Route: 048
     Dates: start: 20130903

REACTIONS (4)
  - Vertigo positional [Recovering/Resolving]
  - White matter lesion [Unknown]
  - Carotid arteriosclerosis [Unknown]
  - Degenerative aortic valve disease [Unknown]

NARRATIVE: CASE EVENT DATE: 20141105
